FAERS Safety Report 7407228-7 (Version None)
Quarter: 2011Q2

REPORT INFORMATION
  Report Type: 
  Country: None (occurrence: None)
  Receive Date: 20110411
  Receipt Date: 20110317
  Transmission Date: 20111010
  Serious: No
  Sender: FDA-Public Use
  Company Number: US-B.I. PHARMACEUTICALS,INC./RIDGEFIELD-2011-BP-08588BP

PATIENT
  Sex: Female

DRUGS (6)
  1. MICARDIS [Suspect]
     Indication: HYPERTENSION
     Dosage: 40 MG
     Route: 048
     Dates: start: 20101101, end: 20101206
  2. MICARDIS [Suspect]
     Dosage: 80 MG
     Route: 048
     Dates: start: 20101207
  3. FLAXSEED OIL [Concomitant]
     Indication: MACULAR DEGENERATION
  4. VITAMIN-MINERAL COMPOUND TAB [Concomitant]
     Indication: MACULAR DEGENERATION
  5. NORVASC [Suspect]
     Indication: HYPERTENSION
  6. ZOCOR [Suspect]
     Indication: BLOOD CHOLESTEROL INCREASED
     Dates: end: 20110208

REACTIONS (5)
  - BLOOD PRESSURE INADEQUATELY CONTROLLED [None]
  - PAIN [None]
  - FATIGUE [None]
  - NERVOUSNESS [None]
  - HYPERTENSION [None]
